FAERS Safety Report 11427896 (Version 6)
Quarter: 2016Q1

REPORT INFORMATION
  Report Type: Spontaneous
  Country: US (occurrence: US)
  Receive Date: 20150828
  Receipt Date: 20160113
  Transmission Date: 20160525
  Serious: Yes (Other)
  Sender: FDA-Public Use
  Company Number: US-ROCHE-ITM201503IM011777

PATIENT
  Sex: Male
  Weight: 81.27 kg

DRUGS (3)
  1. ESBRIET [Suspect]
     Active Substance: PIRFENIDONE
     Dosage: 3 CAPSULES TID
     Route: 048
     Dates: start: 20150413
  2. ESBRIET [Suspect]
     Active Substance: PIRFENIDONE
     Indication: IDIOPATHIC PULMONARY FIBROSIS
     Dosage: 3 CAPSULES TID
     Route: 048
     Dates: start: 20150407
  3. ESBRIET [Suspect]
     Active Substance: PIRFENIDONE
     Dosage: 267MG CAPSULE SHIPPED 8/25/2015
     Route: 048

REACTIONS (22)
  - Thrombosis [Not Recovered/Not Resolved]
  - Pruritus [Unknown]
  - Back pain [Unknown]
  - Musculoskeletal pain [Unknown]
  - Limb discomfort [Unknown]
  - Spinal disorder [Not Recovered/Not Resolved]
  - Muscular weakness [Unknown]
  - Dyspnoea [Unknown]
  - Renal impairment [Unknown]
  - Chest discomfort [Unknown]
  - Inflammation [Unknown]
  - Nasal congestion [Unknown]
  - Productive cough [Unknown]
  - Renal disorder [Not Recovered/Not Resolved]
  - Dysstasia [Recovered/Resolved]
  - Muscular weakness [Recovered/Resolved]
  - Rash [Unknown]
  - Fatigue [Unknown]
  - Angina pectoris [Unknown]
  - Dizziness [Unknown]
  - Lethargy [Unknown]
  - Neck pain [Unknown]
